FAERS Safety Report 6401551-0 (Version None)
Quarter: 2009Q4

REPORT INFORMATION
  Report Type: 
  Country: None (occurrence: None)
  Receive Date: 20091015
  Receipt Date: 20091001
  Transmission Date: 20100525
  Serious: Yes (Hospitalization, Other)
  Sender: FDA-Public Use
  Company Number: US-MYLANLABS-2009S1017376

PATIENT
  Age: 13 Year
  Sex: Female
  Weight: 62 kg

DRUGS (1)
  1. METHIMAZOLE [Suspect]
     Indication: HYPERTHYROIDISM
     Dates: start: 20090829, end: 20090926

REACTIONS (2)
  - ABDOMINAL PAIN [None]
  - FEBRILE NEUTROPENIA [None]
